FAERS Safety Report 7622088-7 (Version None)
Quarter: 2011Q3

REPORT INFORMATION
  Report Type: 
  Country: None (occurrence: None)
  Receive Date: 20110720
  Receipt Date: 20110208
  Transmission Date: 20111222
  Serious: Yes (Other)
  Sender: FDA-Public Use
  Company Number: US-BAYER-2011-012724

PATIENT
  Age: 41 Year
  Sex: Female
  Weight: 58.503 kg

DRUGS (4)
  1. AVELOX [Suspect]
     Indication: SINUSITIS
     Dosage: 400 MG, QD
     Route: 048
     Dates: start: 20110202, end: 20110203
  2. PREDNISONE [Concomitant]
  3. EPIPEN [Concomitant]
  4. AZITHROMYCIN [Concomitant]

REACTIONS (6)
  - GENERALISED ERYTHEMA [None]
  - ABDOMINAL PAIN [None]
  - HYPERSENSITIVITY [None]
  - HEART RATE INCREASED [None]
  - VOMITING [None]
  - BLOOD PRESSURE INCREASED [None]
